FAERS Safety Report 23610709 (Version 1)
Quarter: 2024Q1

REPORT INFORMATION
  Report Type: Spontaneous
  Country: US (occurrence: None)
  Receive Date: 20240307
  Receipt Date: 20240307
  Transmission Date: 20240409
  Serious: Yes (Hospitalization)
  Sender: FDA-Public Use
  Company Number: None

PATIENT
  Age: 29 Year
  Sex: Female
  Weight: 72 kg

DRUGS (4)
  1. MIRALAX [Suspect]
     Active Substance: POLYETHYLENE GLYCOL 3350
     Indication: Constipation
     Dosage: OTHER QUANTITY : 1 CAPFUL;?
     Route: 048
     Dates: start: 20240109, end: 20240109
  2. ADDERALL [Concomitant]
     Active Substance: AMPHETAMINE ASPARTATE\AMPHETAMINE SULFATE\DEXTROAMPHETAMINE SACCHARATE\DEXTROAMPHETAMINE SULFATE
  3. TRAZODONE [Concomitant]
     Active Substance: TRAZODONE HYDROCHLORIDE
  4. ZOLOFT [Concomitant]
     Active Substance: SERTRALINE HYDROCHLORIDE

REACTIONS (18)
  - Dizziness [None]
  - Chest pain [None]
  - Headache [None]
  - Peripheral swelling [None]
  - Peripheral swelling [None]
  - Urticaria [None]
  - Hypersensitivity [None]
  - Rash [None]
  - Mobility decreased [None]
  - Thrombosis [None]
  - Swelling [None]
  - Pain [None]
  - Pain in extremity [None]
  - Pyrexia [None]
  - Vitamin D decreased [None]
  - Urinary tract infection [None]
  - Migraine [None]
  - Neck pain [None]

NARRATIVE: CASE EVENT DATE: 20240109
